FAERS Safety Report 12168742 (Version 1)
Quarter: 2016Q1

REPORT INFORMATION
  Report Type: Report from Study
  Country: US (occurrence: US)
  Receive Date: 20160310
  Receipt Date: 20160310
  Transmission Date: 20160526
  Serious: No
  Sender: FDA-Public Use
  Company Number: GXBR2016US000693

PATIENT
  Age: 13 Year
  Sex: Male
  Weight: 82.54 kg

DRUGS (5)
  1. OMNITROPE [Suspect]
     Active Substance: SOMATROPIN
     Indication: PRODUCT USED FOR UNKNOWN INDICATION
     Dosage: UNK DF, UNK
     Route: 065
  2. ABILIFY [Concomitant]
     Active Substance: ARIPIPRAZOLE
     Dosage: 10 MG, QD
  3. PROZAC [Concomitant]
     Active Substance: FLUOXETINE HYDROCHLORIDE
     Dosage: 20 MG, QD
  4. GUANFACINE. [Concomitant]
     Active Substance: GUANFACINE
     Dosage: 1 MG - 1.5 MG, TID
  5. CLONAZEPAM. [Concomitant]
     Active Substance: CLONAZEPAM
     Dosage: 0.5 MG - 1.5 MG, BID

REACTIONS (7)
  - Blood calcium decreased [Unknown]
  - Blood sodium decreased [Unknown]
  - Blood bilirubin increased [Unknown]
  - Increased appetite [Unknown]
  - Blood bilirubin unconjugated increased [Unknown]
  - Weight increased [Unknown]
  - C-reactive protein increased [Unknown]

NARRATIVE: CASE EVENT DATE: 20140304
